FAERS Safety Report 18393482 (Version 1)
Quarter: 2020Q4

REPORT INFORMATION
  Report Type: Spontaneous
  Country: US (occurrence: US)
  Receive Date: 20201016
  Receipt Date: 20201016
  Transmission Date: 20210114
  Serious: Yes (Hospitalization, Other)
  Sender: FDA-Public Use
  Company Number: US-CASPER PHARMA LLC-2020CAS000384

PATIENT
  Age: 4 Year
  Sex: Female
  Weight: 25.8 kg

DRUGS (8)
  1. INCB018424 [Suspect]
     Active Substance: RUXOLITINIB
     Indication: ACUTE LYMPHOCYTIC LEUKAEMIA
     Dosage: 45 MILLIGRAM, BID, MC2,MC3D1-14,29-43
     Dates: start: 20191008
  2. MERCAPTOPURINE. [Suspect]
     Active Substance: MERCAPTOPURINE
     Indication: ACUTE LYMPHOCYTIC LEUKAEMIA
     Dosage: 50 MILLIGRAM, MC3D1-48
     Route: 048
     Dates: start: 20200519, end: 20200706
  3. PREDNISONE. [Suspect]
     Active Substance: PREDNISONE
     Indication: ACUTE LYMPHOCYTIC LEUKAEMIA
     Dosage: 17.5 MILLIGRAM, BID, MC3D1-5,29-33
     Route: 048
     Dates: start: 20200519
  4. METHOTREXATE. [Suspect]
     Active Substance: METHOTREXATE
     Indication: ACUTE LYMPHOCYTIC LEUKAEMIA
     Dosage: 17.5 MILLIGRAM, MC3D8,15,22,29,36,43
     Route: 048
     Dates: start: 20200526, end: 20200707
  5. METHOTREXATE LNTRATHECAL [Suspect]
     Active Substance: METHOTREXATE
     Indication: ACUTE LYMPHOCYTIC LEUKAEMIA
     Dosage: 12 MILLIGRAM, MC3D1
     Route: 037
     Dates: start: 20200519
  6. INCB018424 (CONSOLIDATION) [Suspect]
     Active Substance: RUXOLITINIB
     Indication: ACUTE LYMPHOCYTIC LEUKAEMIA
     Dosage: 40 MILLIGRAM, BID, IM1, DI PT 1, DI PT 2, MC1
     Route: 048
     Dates: start: 20190304, end: 20200210
  7. ZYLOPRIM [Suspect]
     Active Substance: ALLOPURINOL
     Indication: TRANSAMINASES INCREASED
     Dosage: 100 MILLIGRAM, QD
     Route: 048
     Dates: start: 20200617, end: 20200706
  8. VINCRISTINE [Suspect]
     Active Substance: VINCRISTINE
     Indication: ACUTE LYMPHOCYTIC LEUKAEMIA
     Dosage: 1.35 MILLIGRAM, MC3D1, 29
     Route: 042
     Dates: start: 20200519

REACTIONS (4)
  - White blood cell count decreased [Not Recovered/Not Resolved]
  - Anaemia [Not Recovered/Not Resolved]
  - Febrile neutropenia [Not Recovered/Not Resolved]
  - Platelet count decreased [Not Recovered/Not Resolved]

NARRATIVE: CASE EVENT DATE: 20200706
